FAERS Safety Report 7145424-7 (Version None)
Quarter: 2010Q4

REPORT INFORMATION
  Report Type: 
  Country: None (occurrence: None)
  Receive Date: 20101208
  Receipt Date: 20101126
  Transmission Date: 20110411
  Serious: Yes (Other)
  Sender: FDA-Public Use
  Company Number: IT-SANOFI-AVENTIS-2010SA071683

PATIENT
  Age: 74 Year
  Sex: Male

DRUGS (2)
  1. MULTAQ [Suspect]
     Route: 048
  2. TENORMIN [Concomitant]
     Route: 065

REACTIONS (3)
  - ATRIAL FIBRILLATION [None]
  - BRADYCARDIA [None]
  - UNDERDOSE [None]
